FAERS Safety Report 4535282-9 (Version None)
Quarter: 2004Q4

REPORT INFORMATION
  Report Type: 
  Country: None (occurrence: None)
  Receive Date: 20041214
  Receipt Date: 20041005
  Transmission Date: 20050328
  Serious: No
  Sender: FDA-Public Use
  Company Number: 2004238082US

PATIENT
  Age: 71 Year
  Sex: Female
  Weight: 56.7 kg

DRUGS (6)
  1. BEXTRA [Suspect]
     Indication: RHEUMATOID ARTHRITIS
     Dosage: 10 MG, QD
     Dates: start: 20041004
  2. LOPID [Concomitant]
  3. ESTRADIOL [Concomitant]
  4. ASPIRIN [Concomitant]
  5. AVAPRO [Concomitant]
  6. DETROL LA [Concomitant]

REACTIONS (3)
  - DIARRHOEA [None]
  - FEELING ABNORMAL [None]
  - INFLUENZA LIKE ILLNESS [None]
